FAERS Safety Report 8958634 (Version 1)
Quarter: 2012Q4

REPORT INFORMATION
  Report Type: Spontaneous
  Country: US (occurrence: None)
  Receive Date: 20121206
  Receipt Date: 20121206
  Transmission Date: 20130627
  Serious: Yes (Hospitalization, Other)
  Sender: FDA-Public Use
  Company Number: None

PATIENT
  Sex: Female
  Weight: 66.68 kg

DRUGS (1)
  1. ATORVASTATIN [Suspect]
     Indication: HIGH CHOLESTEROL
     Dosage: 40 MG  1 AT BEDTIME
     Dates: start: 20120126

REACTIONS (4)
  - Malaise [None]
  - Abdominal pain upper [None]
  - Hepatic enzyme increased [None]
  - Poor quality drug administered [None]
